FAERS Safety Report 6284888-8 (Version None)
Quarter: 2009Q3

REPORT INFORMATION
  Report Type: 
  Country: None (occurrence: None)
  Receive Date: 20090727
  Receipt Date: 20090717
  Transmission Date: 20100115
  Serious: Yes (Life-Threatening, Hospitalization)
  Sender: FDA-Public Use
  Company Number: B0585522A

PATIENT
  Age: 3 Year
  Sex: Male

DRUGS (1)
  1. ZENTEL [Suspect]
     Indication: HELMINTHIC INFECTION
     Dosage: 2TABS SINGLE DOSE
     Route: 048
     Dates: start: 20090715

REACTIONS (6)
  - ABDOMINAL PAIN [None]
  - CHEMICAL POISONING [None]
  - COMA [None]
  - DRUG TOXICITY [None]
  - DYSPNOEA [None]
  - PALLOR [None]
